FAERS Safety Report 5126041-7 (Version None)
Quarter: 2006Q4

REPORT INFORMATION
  Report Type: 
  Country: None (occurrence: None)
  Receive Date: 20061010
  Receipt Date: 20061010
  Transmission Date: 20070319
  Serious: Yes (Life-Threatening, Hospitalization)
  Sender: FDA-Public Use
  Company Number: None

PATIENT
  Age: 52 Year
  Sex: Male

DRUGS (1)
  1. CELLCEPT [Suspect]
     Indication: PANCREATIC CARCINOMA METASTATIC
     Dosage: 2500 BID  DAILY  PO
     Route: 048
     Dates: start: 20060906, end: 20060926

REACTIONS (1)
  - OBSTRUCTION GASTRIC [None]
